FAERS Safety Report 8135853-7 (Version None)
Quarter: 2012Q1

REPORT INFORMATION
  Report Type: 
  Country: None (occurrence: None)
  Receive Date: 20120214
  Receipt Date: 20120209
  Transmission Date: 20120608
  Serious: Yes (Other)
  Sender: FDA-Public Use
  Company Number: FR-GLAXOSMITHKLINE-A0965560A

PATIENT
  Age: 31 Year
  Sex: Female

DRUGS (4)
  1. CLOBETASOL PROPIONATE [Suspect]
     Route: 065
  2. DAPSONE [Suspect]
     Indication: GRANULOMA ANNULARE
     Route: 065
  3. CORTICOSTEROIDS [Suspect]
     Route: 065
  4. URSODIOL [Concomitant]

REACTIONS (20)
  - VULVAL OEDEMA [None]
  - CHOLESTASIS [None]
  - DIARRHOEA [None]
  - HYPERTHYROIDISM [None]
  - HYPOTHYROIDISM [None]
  - FACE OEDEMA [None]
  - CYTOLYTIC HEPATITIS [None]
  - TACHYCARDIA [None]
  - DRUG RASH WITH EOSINOPHILIA AND SYSTEMIC SYMPTOMS [None]
  - THYROIDITIS SUBACUTE [None]
  - LYMPHADENOPATHY [None]
  - LEUKOCYTOSIS [None]
  - HOT FLUSH [None]
  - HUMAN HERPESVIRUS 6 INFECTION [None]
  - PYREXIA [None]
  - RASH MACULO-PAPULAR [None]
  - EOSINOPHILIA [None]
  - NIGHT SWEATS [None]
  - ALOPECIA [None]
  - TREMOR [None]
